FAERS Safety Report 8439455-4 (Version None)
Quarter: 2012Q2

REPORT INFORMATION
  Report Type: 
  Country: None (occurrence: None)
  Receive Date: 20120615
  Receipt Date: 20120606
  Transmission Date: 20120825
  Serious: Yes (Hospitalization)
  Sender: FDA-Public Use
  Company Number: US-PFIZER INC-2012135296

PATIENT
  Sex: Male
  Weight: 65.7 kg

DRUGS (13)
  1. DEXAMETHASONE ACETATE [Suspect]
     Indication: NON-HODGKIN'S LYMPHOMA
     Dosage: 40 MG, CYCLIC
     Route: 048
     Dates: start: 20120307, end: 20120530
  2. ALLOPURINOL [Concomitant]
     Dosage: 100 MG, UNK
  3. ACETYLSALICYLIC ACID [Concomitant]
     Dosage: 81 MG, UNK
  4. RAMIPRIL [Concomitant]
     Dosage: 10 MG, UNK
  5. CISPLATIN [Suspect]
     Indication: NON-HODGKIN'S LYMPHOMA
     Dosage: 93 MG, CYCLIC
     Route: 042
     Dates: start: 20120307, end: 20120530
  6. OMEPRAZOLE [Concomitant]
     Dosage: 10 MG, UNK
  7. VITAMIN B COMPLEX CAP [Concomitant]
  8. HYDROCHLOROTHIAZIDE [Concomitant]
     Dosage: 25 MG, UNK
  9. INOTUZUMAB OZOGAMICIN [Suspect]
     Indication: NON-HODGKIN'S LYMPHOMA
     Dosage: 1.49 MG (0.8 MG/M2), CYCLIC
     Route: 042
     Dates: start: 20120307, end: 20120530
  10. EZETIMIBE [Concomitant]
     Dosage: 10 MG, UNK
  11. GABAPENTIN [Concomitant]
     Dosage: 300 MG, UNK
  12. RITUXIMAB [Suspect]
     Indication: NON-HODGKIN'S LYMPHOMA
     Dosage: 697.5 MG, CYCLIC
     Route: 042
     Dates: start: 20120307, end: 20120530
  13. GEMCITABINE HYDROCHLORIDE [Suspect]
     Indication: NON-HODGKIN'S LYMPHOMA
     Dosage: 930 MG, CYCLIC
     Route: 042
     Dates: start: 20120307, end: 20120530

REACTIONS (3)
  - INFECTION [None]
  - PYREXIA [None]
  - CHILLS [None]
